FAERS Safety Report 5806119-2 (Version None)
Quarter: 2008Q3

REPORT INFORMATION
  Report Type: 
  Country: None (occurrence: None)
  Receive Date: 20080710
  Receipt Date: 20080630
  Transmission Date: 20090109
  Serious: Yes (Disabling)
  Sender: FDA-Public Use
  Company Number: US-MERCK-0705USA01329

PATIENT
  Age: 49 Year
  Sex: Female
  Weight: 56 kg

DRUGS (6)
  1. FOSAMAX [Suspect]
     Indication: OSTEOPOROSIS
     Route: 048
     Dates: start: 19990101, end: 20040101
  2. FOSAMAX [Suspect]
     Route: 048
     Dates: start: 20030101
  3. FOSAMAX [Suspect]
     Indication: OSTEOPENIA
     Route: 048
     Dates: start: 19990101, end: 20040101
  4. FOSAMAX [Suspect]
     Route: 048
     Dates: start: 20030101
  5. FOSAMAX PLUS D [Suspect]
     Indication: RESORPTION BONE INCREASED
     Route: 048
     Dates: start: 20040101, end: 20060601
  6. PREMPRO [Concomitant]
     Route: 065
     Dates: start: 19990101, end: 20040101

REACTIONS (38)
  - ACUTE SINUSITIS [None]
  - ASTHENIA [None]
  - BACK PAIN [None]
  - BURSITIS [None]
  - CARPAL TUNNEL SYNDROME [None]
  - COMPLEMENT FACTOR C3 DECREASED [None]
  - CONTUSION [None]
  - CYSTATIN C INCREASED [None]
  - DEPRESSION [None]
  - DRY SKIN [None]
  - EUSTACHIAN TUBE DYSFUNCTION [None]
  - FIBROMYALGIA [None]
  - GASTRIC POLYPS [None]
  - GASTROOESOPHAGEAL REFLUX DISEASE [None]
  - GINGIVAL POLYP [None]
  - HEADACHE [None]
  - LIVEDO RETICULARIS [None]
  - LUMBAR SPINAL STENOSIS [None]
  - MUSCLE DISORDER [None]
  - NASAL SEPTUM DEVIATION [None]
  - NASOPHARYNGITIS [None]
  - NECK PAIN [None]
  - NEUROPATHY PERIPHERAL [None]
  - ORAL HERPES [None]
  - OSTEONECROSIS [None]
  - PAIN IN EXTREMITY [None]
  - POLLAKIURIA [None]
  - RASH [None]
  - RESORPTION BONE INCREASED [None]
  - RETINAL DEGENERATION [None]
  - SACROILIITIS [None]
  - SCOLIOSIS [None]
  - SINUSITIS [None]
  - SPONDYLOARTHROPATHY [None]
  - SYNOVITIS [None]
  - TENDONITIS [None]
  - TOOTH ABSCESS [None]
  - UPPER RESPIRATORY TRACT INFECTION [None]
